FAERS Safety Report 14686749 (Version 1)
Quarter: 2018Q1

REPORT INFORMATION
  Report Type: Spontaneous
  Country: US (occurrence: US)
  Receive Date: 20180327
  Receipt Date: 20180327
  Transmission Date: 20180509
  Serious: No
  Sender: FDA-Public Use
  Company Number: US-BIOGEN-2015BI035528

PATIENT
  Age: 62 Year
  Sex: Female

DRUGS (1)
  1. PLEGRIDY [Suspect]
     Active Substance: PEGINTERFERON BETA-1A
     Indication: MULTIPLE SCLEROSIS
     Route: 058
     Dates: start: 20150210

REACTIONS (10)
  - Device malfunction [Unknown]
  - Fatigue [Not Recovered/Not Resolved]
  - Injection site discolouration [Recovered/Resolved]
  - Thirst [Recovered/Resolved]
  - Muscular weakness [Not Recovered/Not Resolved]
  - Drug dose omission [Unknown]
  - Influenza like illness [Recovered/Resolved]
  - Injection site erythema [Not Recovered/Not Resolved]
  - Feeling abnormal [Recovered/Resolved]
  - Injection site pruritus [Recovered/Resolved]

NARRATIVE: CASE EVENT DATE: 20150210
